FAERS Safety Report 8236396-2 (Version None)
Quarter: 2012Q1

REPORT INFORMATION
  Report Type: 
  Country: None (occurrence: None)
  Receive Date: 20120327
  Receipt Date: 20120322
  Transmission Date: 20120608
  Serious: No
  Sender: FDA-Public Use
  Company Number: US-PFIZER INC-2012074939

PATIENT
  Sex: Female
  Weight: 55.782 kg

DRUGS (4)
  1. ACTIVELLA [Concomitant]
     Indication: NIGHT SWEATS
  2. IBUPROFEN (ADVIL) [Suspect]
     Indication: SLEEP DISORDER
     Dosage: 400 MG (2 TABLETS OF 200MG), ALTERNATE DAY
     Route: 048
  3. ACTIVELLA [Concomitant]
     Indication: HORMONE THERAPY
     Dosage: 0.5/0.1 MG, DAILY
  4. IBUPROFEN (ADVIL) [Suspect]
     Indication: NECK INJURY

REACTIONS (1)
  - RASH [None]
